FAERS Safety Report 13945905 (Version 1)
Quarter: 2017Q3

REPORT INFORMATION
  Report Type: Spontaneous
  Country: US (occurrence: US)
  Receive Date: 20170907
  Receipt Date: 20170907
  Transmission Date: 20171128
  Serious: No
  Sender: FDA-Public Use
  Company Number: US-ALLERGAN-1732261US

PATIENT
  Sex: Female

DRUGS (3)
  1. BUTALBITAL;ASPIRIN;CAFFEINE UNK [Suspect]
     Active Substance: ASPIRIN\BUTALBITAL\CAFFEINE
     Indication: PAIN
  2. BUTALBITAL;ASPIRIN;CAFFEINE UNK [Suspect]
     Active Substance: ASPIRIN\BUTALBITAL\CAFFEINE
     Indication: HEADACHE
  3. BUTALBITAL;ASPIRIN;CAFFEINE UNK [Suspect]
     Active Substance: ASPIRIN\BUTALBITAL\CAFFEINE
     Indication: DYSMENORRHOEA
     Dosage: UNK
     Dates: end: 201707

REACTIONS (6)
  - Head discomfort [Not Recovered/Not Resolved]
  - Malaise [Unknown]
  - Feeling abnormal [Not Recovered/Not Resolved]
  - Uterine disorder [Unknown]
  - Impaired driving ability [None]
  - Off label use [Unknown]
